FAERS Safety Report 7768507-7 (Version None)
Quarter: 2011Q3

REPORT INFORMATION
  Report Type: 
  Country: None (occurrence: None)
  Receive Date: 20110922
  Receipt Date: 20100901
  Transmission Date: 20111222
  Serious: No
  Sender: FDA-Public Use
  Company Number: US-ASTRAZENECA-2010SE41213

PATIENT
  Age: 45 Year
  Sex: Female
  Weight: 89.4 kg

DRUGS (4)
  1. SEROQUEL XR [Suspect]
     Indication: SLEEP DISORDER
     Route: 048
     Dates: start: 20100101
  2. SEROQUEL XR [Suspect]
     Route: 048
     Dates: start: 20100101
  3. EFFEXOR [Concomitant]
  4. ABILIFY [Concomitant]

REACTIONS (3)
  - INCORRECT DOSE ADMINISTERED [None]
  - DRUG INEFFECTIVE FOR UNAPPROVED INDICATION [None]
  - INSOMNIA [None]
